FAERS Safety Report 16292020 (Version 2)
Quarter: 2019Q2

REPORT INFORMATION
  Report Type: Spontaneous
  Country: GB (occurrence: GB)
  Receive Date: 20190509
  Receipt Date: 20190620
  Transmission Date: 20190711
  Serious: Yes (Death, Hospitalization)
  Sender: FDA-Public Use
  Company Number: GB-MYLANLABS-2019M1045318

PATIENT
  Age: 66 Year
  Sex: Female
  Weight: 83 kg

DRUGS (13)
  1. FLOTROS [Concomitant]
     Indication: IRRITABLE BOWEL SYNDROME
     Dosage: 200 MILLIGRAM, BID
     Route: 048
     Dates: start: 201601
  2. FERROUS GLUCONATE [Concomitant]
     Active Substance: FERROUS GLUCONATE
     Indication: SERUM FERRITIN DECREASED
     Dosage: 600 MILLIGRAM, QD
     Route: 048
     Dates: start: 201211
  3. BISACODYL. [Concomitant]
     Active Substance: BISACODYL
     Indication: CONSTIPATION
     Dosage: 5 MILLIGRAM (1-2 DAILY)
     Route: 048
     Dates: start: 200107
  4. EPHEDRINE HYDROCHLORIDE [Concomitant]
     Active Substance: EPHEDRINE HYDROCHLORIDE
     Indication: AUTONOMIC NERVOUS SYSTEM IMBALANCE
     Dosage: 60 MILLIGRAM, TID
     Route: 048
     Dates: start: 200111
  5. ALVESIN 10 E [Concomitant]
     Indication: DIVERTICULUM
     Dosage: 60 MILLIGRAM, TID
     Route: 048
     Dates: start: 201005
  6. CLOZARIL [Suspect]
     Active Substance: CLOZAPINE
     Indication: SCHIZOPHRENIA
     Dosage: UNK
     Route: 048
     Dates: start: 20010701
  7. FLUDROCORTISONE [Concomitant]
     Active Substance: FLUDROCORTISONE
     Indication: HYPOTENSION
     Dosage: 15 MICROGRAM, QD
     Route: 048
     Dates: start: 200111
  8. TRIMETHOPRIM. [Concomitant]
     Active Substance: TRIMETHOPRIM
     Indication: URINARY TRACT INFECTION
     Dosage: 100 MILLIGRAM, QD
     Route: 048
     Dates: start: 200104
  9. AMISULPRIDE [Concomitant]
     Active Substance: AMISULPRIDE
     Indication: SCHIZOPHRENIA
     Dosage: 200 MILLIGRAM, BID
     Route: 048
     Dates: start: 200502
  10. FOSTAIR [Concomitant]
     Active Substance: BECLOMETHASONE\FORMOTEROL
     Indication: ASTHMA
     Dosage: UNK, TID
     Dates: start: 200104
  11. SALBUTAMOL [Concomitant]
     Active Substance: ALBUTEROL
     Indication: ASTHMA
     Dosage: UNK, PRN
     Dates: start: 200607
  12. ESOMEPRAZOLE. [Concomitant]
     Active Substance: ESOMEPRAZOLE MAGNESIUM
     Indication: DYSPEPSIA
     Dosage: 4 MILLIGRAM, BID
     Route: 048
     Dates: start: 200701
  13. ACEBUTOLOL [Concomitant]
     Active Substance: ACEBUTOLOL
     Indication: BLOOD PRESSURE MEASUREMENT
     Dosage: 100 MILLIGRAM, QD
     Route: 048
     Dates: start: 201204

REACTIONS (4)
  - Syncope [Unknown]
  - Cardiopulmonary failure [Fatal]
  - Autonomic failure syndrome [Fatal]
  - Respiratory tract infection [Unknown]

NARRATIVE: CASE EVENT DATE: 201901
